FAERS Safety Report 18857667 (Version 1)
Quarter: 2021Q1

REPORT INFORMATION
  Report Type: Spontaneous
  Country: US (occurrence: US)
  Receive Date: 20210208
  Receipt Date: 20210208
  Transmission Date: 20210420
  Serious: No
  Sender: FDA-Public Use
  Company Number: US-GLAXOSMITHKLINE-USCH2021003807

PATIENT
  Age: 58 Year
  Sex: Male

DRUGS (2)
  1. EXCEDRIN MIGRAINE [Suspect]
     Active Substance: ACETAMINOPHEN\ASPIRIN\CAFFEINE
     Indication: VISUAL IMPAIRMENT
     Dosage: UNK
  2. EXCEDRIN MIGRAINE [Suspect]
     Active Substance: ACETAMINOPHEN\ASPIRIN\CAFFEINE
     Indication: VISUAL IMPAIRMENT
     Dosage: UNK

REACTIONS (4)
  - Therapeutic response changed [Unknown]
  - Product use in unapproved indication [Unknown]
  - Product storage error [Unknown]
  - Therapeutic response unexpected [Unknown]
